FAERS Safety Report 6235129-9 (Version None)
Quarter: 2009Q2

REPORT INFORMATION
  Report Type: 
  Country: None (occurrence: None)
  Receive Date: 20090618
  Receipt Date: 20090604
  Transmission Date: 20091009
  Serious: Yes (Death, Hospitalization)
  Sender: FDA-Public Use
  Company Number: GB-TEVA-197224ISR

PATIENT
  Age: 51 Year
  Sex: Female

DRUGS (4)
  1. PREDNISOLONE [Suspect]
     Indication: B-CELL LYMPHOMA STAGE III
  2. VINCRISTINE [Suspect]
     Indication: B-CELL LYMPHOMA STAGE III
  3. DOXORUBICIN HCL [Suspect]
     Indication: B-CELL LYMPHOMA STAGE III
  4. CYCLOPHOSPHAMIDE [Suspect]
     Indication: B-CELL LYMPHOMA STAGE III

REACTIONS (4)
  - CANDIDIASIS [None]
  - PNEUMONIA [None]
  - SEPTIC SHOCK [None]
  - STAPHYLOCOCCAL INFECTION [None]
